FAERS Safety Report 16640063 (Version 1)
Quarter: 2019Q3

REPORT INFORMATION
  Report Type: Spontaneous
  Country: SG (occurrence: SG)
  Receive Date: 20190727
  Receipt Date: 20190727
  Transmission Date: 20191004
  Serious: Yes (Other)
  Sender: FDA-Public Use
  Company Number: PHHY2019SG175185

PATIENT
  Age: 94 Year
  Sex: Female

DRUGS (1)
  1. DICLOFENAC [Suspect]
     Active Substance: DICLOFENAC
     Indication: GOUT
     Dosage: UNK
     Route: 048

REACTIONS (3)
  - Fluid overload [Unknown]
  - Glomerular filtration rate decreased [Unknown]
  - Localised oedema [Unknown]

NARRATIVE: CASE EVENT DATE: 20190619
